FAERS Safety Report 13369603 (Version 1)
Quarter: 2017Q1

REPORT INFORMATION
  Report Type: Spontaneous
  Country: US (occurrence: US)
  Receive Date: 20170324
  Receipt Date: 20170324
  Transmission Date: 20170429
  Serious: No
  Sender: FDA-Public Use
  Company Number: US-ROCHE-1205846

PATIENT
  Sex: Female
  Weight: 76.26 kg

DRUGS (18)
  1. PRILOSEC [Concomitant]
     Active Substance: OMEPRAZOLE MAGNESIUM
     Indication: GASTROOESOPHAGEAL REFLUX DISEASE
     Route: 065
     Dates: start: 201008
  2. QVAR [Concomitant]
     Active Substance: BECLOMETHASONE DIPROPIONATE
     Indication: ASTHMA
     Dosage: 2 PUFF
     Route: 050
     Dates: start: 20121213
  3. PATANASE [Concomitant]
     Active Substance: OLOPATADINE HYDROCHLORIDE
     Indication: RHINITIS ALLERGIC
     Dosage: 0.6 % SPRAY
     Route: 045
     Dates: start: 201010
  4. CRESTOR [Concomitant]
     Active Substance: ROSUVASTATIN CALCIUM
     Indication: BLOOD CHOLESTEROL INCREASED
     Route: 048
     Dates: start: 201008
  5. ASPIRIN/BUTALBITAL/CAFFEINE [Concomitant]
     Route: 048
     Dates: start: 201008
  6. FORMOTEROL FUMARATE/MOMETASONE FUROATE [Concomitant]
     Active Substance: FORMOTEROL FUMARATE\MOMETASONE FUROATE
     Indication: ASTHMA
     Dosage: 2 PUFFS
     Route: 050
  7. CYCLOBENZAPRINE [Concomitant]
     Active Substance: CYCLOBENZAPRINE
     Route: 048
     Dates: start: 201208
  8. CICLESONIDE [Concomitant]
     Active Substance: CICLESONIDE
     Indication: RHINITIS ALLERGIC
     Route: 045
     Dates: start: 201210
  9. EPINEPHRINE. [Concomitant]
     Active Substance: EPINEPHRINE
     Dosage: .3MG/ 0.3 ML
     Route: 065
     Dates: start: 201008, end: 201008
  10. MORPHINE [Concomitant]
     Active Substance: MORPHINE
     Indication: RHINITIS ALLERGIC
     Route: 048
     Dates: end: 201008
  11. DICYCLOMINE [Concomitant]
     Active Substance: DICYCLOMINE HYDROCHLORIDE
     Route: 048
     Dates: start: 20120304
  12. PROVENTIL HFA [Concomitant]
     Active Substance: ALBUTEROL SULFATE
     Indication: ASTHMA
     Dosage: 2 PUFF
     Route: 050
     Dates: start: 201008
  13. PULMICORT TURBUHALER [Concomitant]
     Active Substance: BUDESONIDE
     Indication: ASTHMA
     Dosage: 0.5MG/2 ML
     Route: 050
     Dates: start: 20121020
  14. XOLAIR [Suspect]
     Active Substance: OMALIZUMAB
     Indication: ASTHMA
     Route: 058
     Dates: start: 20130227
  15. TRILEPTAL [Concomitant]
     Active Substance: OXCARBAZEPINE
     Route: 048
     Dates: start: 201008
  16. SINGULAIR [Concomitant]
     Active Substance: MONTELUKAST SODIUM
     Indication: ASTHMA
     Route: 048
     Dates: start: 201009
  17. CELEBREX [Concomitant]
     Active Substance: CELECOXIB
     Route: 048
     Dates: start: 201008
  18. ZOLOFT [Concomitant]
     Active Substance: SERTRALINE HYDROCHLORIDE
     Indication: DEPRESSION
     Route: 048
     Dates: start: 201008

REACTIONS (1)
  - Injection site reaction [Recovered/Resolved]
